FAERS Safety Report 10211743 (Version 1)
Quarter: 2014Q2

REPORT INFORMATION
  Report Type: Spontaneous
  Country: JP (occurrence: JP)
  Receive Date: 20140602
  Receipt Date: 20140602
  Transmission Date: 20141212
  Serious: Yes (Other)
  Sender: FDA-Public Use
  Company Number: JP-ABBVIE-14P-087-1243077-00

PATIENT
  Sex: 0

DRUGS (1)
  1. LUPRON FOR INJECTION KIT [Suspect]
     Indication: PRECOCIOUS PUBERTY
     Route: 058

REACTIONS (1)
  - Deafness [Unknown]
